FAERS Safety Report 9889210 (Version 1)
Quarter: 2014Q1

REPORT INFORMATION
  Report Type: Spontaneous
  Country: US (occurrence: None)
  Receive Date: 20140207
  Receipt Date: 20140207
  Transmission Date: 20141002
  Serious: Yes (Other)
  Sender: FDA-Public Use
  Company Number: 2014US00105

PATIENT
  Sex: 0

DRUGS (2)
  1. GEMCITABINE (GEMCITABINE) INJECTION [Suspect]
     Dosage: INTRAVENOUS
     Route: 042
  2. AZD7762 [Suspect]
     Indication: NEOPLASM

REACTIONS (1)
  - Chest pain [None]
